FAERS Safety Report 8177909-9 (Version None)
Quarter: 2012Q1

REPORT INFORMATION
  Report Type: 
  Country: None (occurrence: None)
  Receive Date: 20120127
  Receipt Date: 20111016
  Transmission Date: 20120608
  Serious: Yes (Other)
  Sender: FDA-Public Use
  Company Number: 1014112-292-CC

PATIENT
  Age: 74 Year
  Sex: Female

DRUGS (3)
  1. GABAPENTIN [Concomitant]
  2. LEVOTRIACETAM [Concomitant]
  3. OXCARBAZEPINE [Suspect]
     Indication: POST PROCEDURAL COMPLICATION
     Dosage: 600 MG QD
     Dates: start: 20110501, end: 20110801

REACTIONS (4)
  - SYNCOPE [None]
  - VISUAL IMPAIRMENT [None]
  - HEARING IMPAIRED [None]
  - TREMOR [None]
